FAERS Safety Report 5277939-0 (Version None)
Quarter: 2007Q1

REPORT INFORMATION
  Report Type: 
  Country: None (occurrence: None)
  Receive Date: 20070327
  Receipt Date: 20060619
  Transmission Date: 20070707
  Serious: Yes (Other)
  Sender: FDA-Public Use
  Company Number: US-PFIZER INC-2007023319

PATIENT
  Age: 62 Year
  Sex: Female

DRUGS (1)
  1. LIPITOR [Suspect]
     Indication: BLOOD CHOLESTEROL INCREASED

REACTIONS (1)
  - LIP SWELLING [None]
